FAERS Safety Report 9358597 (Version 1)
Quarter: 2013Q2

REPORT INFORMATION
  Report Type: Spontaneous
  Country: US (occurrence: US)
  Receive Date: 20130620
  Receipt Date: 20130620
  Transmission Date: 20140414
  Serious: No
  Sender: FDA-Public Use
  Company Number: US-BAYER-2013-075296

PATIENT
  Age: 71 Year
  Sex: Female
  Weight: 39 kg

DRUGS (5)
  1. ALEVE TABLET [Suspect]
     Route: 048
  2. METAMUCIL [Concomitant]
  3. CALCIUM [Concomitant]
  4. CLONAZEPAM [Concomitant]
  5. PROZAC [Concomitant]

REACTIONS (5)
  - Incorrect dose administered [None]
  - Nausea [Not Recovered/Not Resolved]
  - Headache [Not Recovered/Not Resolved]
  - Constipation [Not Recovered/Not Resolved]
  - Incorrect drug administration duration [None]
